FAERS Safety Report 5091455-0 (Version None)
Quarter: 2006Q3

REPORT INFORMATION
  Report Type: 
  Country: None (occurrence: None)
  Receive Date: 20060727
  Receipt Date: 20060510
  Transmission Date: 20061208
  Serious: Yes (Other)
  Sender: FDA-Public Use
  Company Number: 2006051550

PATIENT
  Age: 64 Year
  Sex: Male
  Weight: 52.6173 kg

DRUGS (3)
  1. LYRICA [Suspect]
     Indication: HERPES ZOSTER
     Dosage: 150 MG (150 MG,1 D)
     Dates: start: 20060101
  2. ZITHROMAX [Concomitant]
  3. RIFADIN [Concomitant]

REACTIONS (2)
  - DIZZINESS [None]
  - DRUG EFFECT DECREASED [None]
